FAERS Safety Report 7478291-2 (Version None)
Quarter: 2011Q2

REPORT INFORMATION
  Report Type: 
  Country: None (occurrence: None)
  Receive Date: 20110513
  Receipt Date: 20110215
  Transmission Date: 20111010
  Serious: Yes (Other)
  Sender: FDA-Public Use
  Company Number: US-BAYER-201024774NA

PATIENT
  Age: 58 Year
  Sex: Female
  Weight: 70 kg

DRUGS (35)
  1. MAGNEVIST [Suspect]
     Indication: NUCLEAR MAGNETIC RESONANCE IMAGING BRAIN
     Dosage: 15 ML, UNK
     Dates: start: 20060530
  2. OMNISCAN [Suspect]
     Indication: IMAGING PROCEDURE
  3. KLONOPIN [Concomitant]
     Indication: RESTLESS LEGS SYNDROME
     Dosage: 0.5 MG, HS
  4. PLAVIX [Concomitant]
     Indication: THROMBOSIS PROPHYLAXIS
     Dosage: 75 MG, QD
  5. CORTICOSTEROIDS [Concomitant]
     Dates: start: 19860101, end: 19960101
  6. GABAPENTIN [Concomitant]
  7. FOLBEE [Concomitant]
     Indication: SUPPLEMENTATION THERAPY
     Dosage: 1 TABLET, QD
  8. HORMONES AND RELATED AGENTS [Concomitant]
     Indication: HORMONE REPLACEMENT THERAPY
     Dosage: UNK
     Dates: start: 19820101, end: 20060101
  9. CALCITRIOL [Concomitant]
     Dosage: 0.5 MG, BID
  10. LEVOTHYROXINE SODIUM [Concomitant]
     Indication: HYPOTHYROIDISM
     Dosage: 0.125 MG, QD
  11. MIDODRINE HYDROCHLORIDE [Concomitant]
     Indication: HYPOTENSION
     Dosage: 10 MG, QD
  12. COUMADIN [Concomitant]
     Dosage: 2.5 MG, UNK
  13. ZEMPLAR [Concomitant]
     Dosage: 10 MCG
     Route: 042
  14. MAGNEVIST [Suspect]
     Indication: IMAGING PROCEDURE
     Dates: start: 20050526, end: 20050526
  15. OPTIMARK [Suspect]
     Indication: NUCLEAR MAGNETIC RESONANCE IMAGING
  16. CONTRAST MEDIA [Suspect]
     Indication: NUCLEAR MAGNETIC RESONANCE IMAGING
     Dates: start: 20031220, end: 20031220
  17. COLCHICINE [Concomitant]
  18. BLOOD THINNERS (NOS) [Concomitant]
     Indication: THROMBOSIS PROPHYLAXIS
     Dosage: UNK
     Dates: start: 20050101, end: 20080101
  19. SENSIPAR [Concomitant]
  20. ROBAXIN [Concomitant]
  21. PROHANCE [Suspect]
     Indication: IMAGING PROCEDURE
  22. CONTRAST MEDIA [Suspect]
     Indication: ANGIOGRAM
  23. EPOGEN [Concomitant]
     Indication: ANAEMIA
     Dates: start: 19860101
  24. ANTI-REJECTION MEDICATIONS (NOS) [Concomitant]
     Indication: ORGAN TRANSPLANT
     Dosage: UNK
     Dates: start: 19860101, end: 19960101
  25. STEROID ANTIBACTERIALS [Concomitant]
     Indication: ORGAN TRANSPLANT
     Dosage: UNK
     Dates: start: 19860101, end: 19960101
  26. SYNTHROID [Concomitant]
     Dosage: 0.125 MG, QD
  27. IRON SUPPLEMENT [Concomitant]
     Indication: ANAEMIA
     Dosage: 1 TABLET, QD
     Dates: start: 20000101
  28. RENAGEL [Concomitant]
  29. ASPIRIN [Concomitant]
     Dosage: 81 MG, TID
  30. NORVASC [Concomitant]
     Dosage: 5 MG, UNK
  31. MULTIHANCE [Suspect]
     Indication: IMAGING PROCEDURE
  32. NEURONTIN [Concomitant]
     Indication: RESTLESS LEGS SYNDROME
     Dosage: 200 MG, HS
  33. PHOSLO [Concomitant]
  34. NEPHROCAPS [Concomitant]
  35. IMMUNOSUPPRESSIVE AGENTS [Concomitant]
     Indication: ORGAN TRANSPLANT
     Dosage: UNK
     Dates: start: 19860101, end: 19960101

REACTIONS (19)
  - SKIN SWELLING [None]
  - PRURITUS [None]
  - SKIN BURNING SENSATION [None]
  - MOBILITY DECREASED [None]
  - MUSCULAR WEAKNESS [None]
  - SKIN HYPERPIGMENTATION [None]
  - LIVEDO RETICULARIS [None]
  - PEAU D'ORANGE [None]
  - PAIN IN EXTREMITY [None]
  - SKIN FIBROSIS [None]
  - NEPHROGENIC SYSTEMIC FIBROSIS [None]
  - JOINT STIFFNESS [None]
  - SKIN HYPERTROPHY [None]
  - SCAB [None]
  - DEPRESSED MOOD [None]
  - SKIN INDURATION [None]
  - SCAR [None]
  - SKIN DISORDER [None]
  - ANXIETY [None]
